FAERS Safety Report 4811480-1 (Version None)
Quarter: 2005Q4

REPORT INFORMATION
  Report Type: 
  Country: None (occurrence: None)
  Receive Date: 20051027
  Receipt Date: 20050509
  Transmission Date: 20060501
  Serious: Yes (Hospitalization)
  Sender: FDA-Public Use
  Company Number: HQWYE600209MAY05

PATIENT
  Sex: Female

DRUGS (5)
  1. ENBREL [Suspect]
     Indication: RHEUMATOID ARTHRITIS
     Route: 058
     Dates: start: 20050502, end: 20050506
  2. PREDNISOLONE [Concomitant]
     Route: 048
     Dates: end: 20050509
  3. LIPITOR [Concomitant]
     Route: 048
     Dates: end: 20050509
  4. DIOVAN [Concomitant]
     Route: 065
  5. POLAPREZINC [Concomitant]
     Route: 065

REACTIONS (3)
  - ASPARTATE AMINOTRANSFERASE INCREASED [None]
  - CHEST X-RAY ABNORMAL [None]
  - PNEUMONIA [None]
